FAERS Safety Report 14137954 (Version 2)
Quarter: 2017Q4

REPORT INFORMATION
  Report Type: Spontaneous
  Country: BR (occurrence: BR)
  Receive Date: 20171027
  Receipt Date: 20171106
  Transmission Date: 20180321
  Serious: Yes (Hospitalization, Other)
  Sender: FDA-Public Use
  Company Number: BR-DSJP-DSU-2017-151295

PATIENT

DRUGS (1)
  1. OLMETEC [Suspect]
     Active Substance: OLMESARTAN MEDOXOMIL
     Indication: HYPERTENSION
     Dosage: 20 MG, QD
     Route: 065
     Dates: start: 2013, end: 20170612

REACTIONS (5)
  - Exaggerated startle response [Unknown]
  - Carotid artery occlusion [Unknown]
  - Cerebrovascular accident [Unknown]
  - Fear [Unknown]
  - Nausea [Unknown]

NARRATIVE: CASE EVENT DATE: 20170613
